FAERS Safety Report 8520271 (Version 2)
Quarter: 2013Q2

REPORT INFORMATION
  Report Type: Spontaneous
  Country: US (occurrence: US)
  Receive Date: 20120418
  Receipt Date: 20130509
  Transmission Date: 20140414
  Serious: Yes (Other)
  Sender: FDA-Public Use
  Company Number: US-GLAXOSMITHKLINE-A0794729A

PATIENT
  Age: 23 Year
  Sex: Female
  Weight: 138.6 kg

DRUGS (2)
  1. AVANDIA [Suspect]
     Indication: DIABETES MELLITUS
     Dosage: 4MG PER DAY
     Route: 048
     Dates: start: 20050422, end: 200612
  2. AVANDAMET [Suspect]
     Indication: TYPE 2 DIABETES MELLITUS
     Route: 048
     Dates: start: 200612, end: 20070613

REACTIONS (4)
  - Cardiomegaly [Not Recovered/Not Resolved]
  - Heart valve incompetence [Unknown]
  - Chest pain [Unknown]
  - Palpitations [Unknown]
